FAERS Safety Report 19920177 (Version 10)
Quarter: 2024Q3

REPORT INFORMATION
  Report Type: Spontaneous
  Country: CA (occurrence: CA)
  Receive Date: 20211005
  Receipt Date: 20240708
  Transmission Date: 20241017
  Serious: Yes (Life-Threatening, Hospitalization, Other)
  Sender: PFIZER
  Company Number: CA-MLMSERVICE-20210922-3119653-1

PATIENT
  Age: 69 Year
  Sex: Male

DRUGS (5)
  1. METHYLPREDNISOLONE SODIUM SUCCINATE [Suspect]
     Active Substance: METHYLPREDNISOLONE SODIUM SUCCINATE
     Indication: Myocarditis
     Dosage: 125 MG, DAILY
     Route: 042
  2. METHYLPREDNISOLONE SODIUM SUCCINATE [Suspect]
     Active Substance: METHYLPREDNISOLONE SODIUM SUCCINATE
     Indication: Cardiogenic shock
     Dosage: 1 G, DAILY (24 HOUR INTERVAL)
     Route: 042
  3. MYCOPHENOLIC ACID [Suspect]
     Active Substance: MYCOPHENOLIC ACID
     Indication: Cardiogenic shock
     Dosage: 1 G, 2X/DAY
     Route: 048
  4. MYCOPHENOLIC ACID [Suspect]
     Active Substance: MYCOPHENOLIC ACID
     Indication: Myocarditis
  5. AMIODARONE [Concomitant]
     Active Substance: AMIODARONE
     Indication: Ventricular tachycardia
     Dosage: UNK
     Route: 042

REACTIONS (10)
  - Gastritis [Unknown]
  - Cytomegalovirus viraemia [Unknown]
  - Anaemia [Unknown]
  - Oesophagitis [Unknown]
  - Somnolence [Unknown]
  - Respiratory failure [Unknown]
  - Gastrointestinal haemorrhage [Unknown]
  - Duodenal ulcer [Unknown]
  - Gastric ulcer [Unknown]
  - Drug ineffective [Unknown]
